FAERS Safety Report 18374322 (Version 1)
Quarter: 2020Q4

REPORT INFORMATION
  Report Type: Other
  Country: ZA (occurrence: ZA)
  Receive Date: 20201013
  Receipt Date: 20201013
  Transmission Date: 20210114
  Serious: Yes (Other)
  Sender: FDA-Public Use
  Company Number: ZA-ROCHE-2692569

PATIENT
  Age: 81 Year
  Sex: Female

DRUGS (3)
  1. LUCENTIS [Suspect]
     Active Substance: RANIBIZUMAB
     Indication: AGE-RELATED MACULAR DEGENERATION
     Route: 031
     Dates: start: 201803
  2. LUCENTIS [Suspect]
     Active Substance: RANIBIZUMAB
     Route: 031
  3. LUCENTIS [Suspect]
     Active Substance: RANIBIZUMAB
     Dosage: 0.5 MG, TREAT AND EXTEND
     Route: 047
     Dates: start: 201806

REACTIONS (5)
  - Visual acuity reduced [Unknown]
  - Vertigo [Not Recovered/Not Resolved]
  - Subretinal fluid [Unknown]
  - Fall [Unknown]
  - Retinal oedema [Unknown]

NARRATIVE: CASE EVENT DATE: 20200930
